FAERS Safety Report 25815194 (Version 1)
Quarter: 2025Q3

REPORT INFORMATION
  Report Type: Spontaneous
  Country: JP (occurrence: JP)
  Receive Date: 20250918
  Receipt Date: 20250918
  Transmission Date: 20251020
  Serious: Yes (Other)
  Sender: MERCK SHARP & DOHME LLC
  Company Number: JP-009507513-2301566

PATIENT
  Age: 74 Year
  Sex: Female
  Weight: 59.5 kg

DRUGS (20)
  1. KEYTRUDA [Suspect]
     Active Substance: PEMBROLIZUMAB
     Indication: Malignant neoplasm of renal pelvis
     Route: 041
     Dates: start: 20240418, end: 20240418
  2. MIYA-BM TABLETS 20MG [Concomitant]
     Route: 048
  3. URSODEOXYCHOLIC ACID TABLETS 100MG [Concomitant]
     Route: 048
  4. DOMPERIDONE TABLETS 10MG [Concomitant]
     Route: 048
  5. SENNOSIDE TABLETS 12MG [Concomitant]
     Route: 048
  6. TRAMADOL HYDROCHLORIDE [Concomitant]
     Active Substance: TRAMADOL HYDROCHLORIDE
     Route: 048
  7. METOCLOPRAMIDE TABLETS 5MG [Concomitant]
     Route: 048
  8. LOPEMIN CAPSULES 1MG [Concomitant]
     Route: 048
  9. CLOPIDOGREL [Concomitant]
     Active Substance: CLOPIDOGREL BISULFATE
     Dosage: AFTER BREAKFAST
     Route: 048
  10. CILNIDIPINE TABLETS 10MG [Concomitant]
     Dosage: AFTER BREAKFAST
     Route: 048
  11. FAMOTIDINE OD TABLETS 20MG [Concomitant]
     Dosage: AFTER DINNER
     Route: 048
  12. MAGNESIUM OXIDE TABLETS 500MG [Concomitant]
     Dosage: AFTER DINNER
     Route: 048
  13. LEXAPRO TABLETS 10MG [Concomitant]
     Dosage: AFTER DINNER
     Route: 048
  14. PITAVASTATIN CALCIUM OD TABLETS 2MG [Concomitant]
     Dosage: BEFORE BED
     Route: 048
  15. DEPAS TABLETS 0.25MG [Concomitant]
     Dosage: BEFORE BED
     Route: 048
  16. ATARAX P CAPSULES 25MG [Concomitant]
     Dosage: 2 CP BEFORE BED
     Route: 048
  17. LATACHIMO COMBINATION OPHTHALMIC SOLUTION [Concomitant]
     Dosage: INSTILLATION INTO BOTH EYES
     Route: 047
  18. PIRENOXINE OPHTHALMIC SUSPENSION 0.005% [Concomitant]
     Dosage: INSTILLATION INTO BOTH EYES
     Route: 047
  19. HYALURONATE NA OPHTHALMIC SOLUTION 0.1% [Concomitant]
     Route: 047
  20. LOXOPROFEN SODIUM TAPE 100MG [Concomitant]
     Route: 061

REACTIONS (2)
  - Immune-mediated adverse reaction [Not Recovered/Not Resolved]
  - Thyroiditis [Not Recovered/Not Resolved]

NARRATIVE: CASE EVENT DATE: 20240509
